FAERS Safety Report 12798697 (Version 3)
Quarter: 2016Q4

REPORT INFORMATION
  Report Type: Report from Study
  Country: BR (occurrence: BR)
  Receive Date: 20160930
  Receipt Date: 20161103
  Transmission Date: 20170207
  Serious: Yes (Life-Threatening, Other)
  Sender: FDA-Public Use
  Company Number: PHHY2015BR152257

PATIENT
  Age: 9 Year
  Sex: Male
  Weight: 27.9 kg

DRUGS (5)
  1. CAPTORIL [Concomitant]
     Active Substance: CAPTOPRIL
     Indication: CARDIAC MURMUR
     Dosage: 2 DF, QD
     Route: 048
  2. EXJADE [Suspect]
     Active Substance: DEFERASIROX
     Indication: SICKLE CELL ANAEMIA
     Dosage: 25 MG/KG, QD (1 TABLET OF 500 MG + 1 TABLET OF 125 MG, IN THE MORNING)
     Route: 048
     Dates: end: 201510
  3. EXJADE [Suspect]
     Active Substance: DEFERASIROX
     Dosage: 30 MG/KG, QD (1 TABLET OF 500 MG + 1 TABLET OF 250 MG)
     Route: 048
     Dates: start: 201601
  4. EXJADE [Suspect]
     Active Substance: DEFERASIROX
     Dosage: 20 MG/KG, QD, 1 TABLET OF 500 MG
     Route: 048
     Dates: start: 201510, end: 201601
  5. PEN-VE-ORAL [Concomitant]
     Active Substance: PENICILLIN V POTASSIUM
     Indication: PRODUCT USED FOR UNKNOWN INDICATION
     Dosage: 1 DF, QD
     Route: 048

REACTIONS (31)
  - Nasopharyngitis [Recovered/Resolved]
  - Flatulence [Recovering/Resolving]
  - Abdominal pain upper [Recovered/Resolved]
  - Rhinorrhoea [Recovered/Resolved]
  - Influenza [Recovered/Resolved]
  - Cardiomegaly [Unknown]
  - Decreased immune responsiveness [Unknown]
  - Wrong technique in product usage process [Unknown]
  - Vomiting [Recovered/Resolved]
  - Abdominal distension [Recovering/Resolving]
  - Malaise [Unknown]
  - Abdominal pain [Not Recovered/Not Resolved]
  - Sickle cell anaemia with crisis [Unknown]
  - Rhinorrhoea [Recovered/Resolved]
  - Splenic neoplasm malignancy unspecified [Unknown]
  - Nodule [Unknown]
  - Influenza [Recovered/Resolved]
  - Pyrexia [Recovered/Resolved]
  - Viral infection [Recovered/Resolved]
  - Constipation [Unknown]
  - Nasopharyngitis [Unknown]
  - Drug ineffective [Unknown]
  - Serum ferritin increased [Unknown]
  - Liver disorder [Unknown]
  - Retching [Unknown]
  - Cough [Recovered/Resolved]
  - Cough [Recovered/Resolved]
  - Pyrexia [Recovered/Resolved]
  - Malaise [Recovered/Resolved]
  - Haemoglobin decreased [Unknown]
  - Transaminases increased [Not Recovered/Not Resolved]

NARRATIVE: CASE EVENT DATE: 201511
